FAERS Safety Report 7749756 (Version 5)
Quarter: 2013Q2

REPORT INFORMATION
  Report Type: Spontaneous
  Country: US (occurrence: US)
  Receive Date: 20110106
  Receipt Date: 20130607
  Transmission Date: 20140414
  Serious: No
  Sender: FDA-Public Use
  Company Number: US-BIOGENIDEC-2010BI045011

PATIENT
  Age: 48 Year
  Sex: Female

DRUGS (2)
  1. TYSABRI [Suspect]
     Indication: MULTIPLE SCLEROSIS
     Route: 042
     Dates: start: 20100903
  2. COUMADIN [Concomitant]
     Indication: PULMONARY EMBOLISM
     Dates: start: 1992

REACTIONS (19)
  - Vaginal abscess [Recovered/Resolved]
  - Diarrhoea [Recovered/Resolved]
  - Catheter site pain [Recovered/Resolved]
  - White blood cell count increased [Not Recovered/Not Resolved]
  - Micturition urgency [Not Recovered/Not Resolved]
  - Back pain [Recovered/Resolved]
  - Vessel puncture site pain [Recovered/Resolved]
  - Stress [Not Recovered/Not Resolved]
  - Furuncle [Recovered/Resolved]
  - Pain in extremity [Not Recovered/Not Resolved]
  - Incontinence [Recovered/Resolved]
  - Anxiety [Not Recovered/Not Resolved]
  - Vaginal lesion [Not Recovered/Not Resolved]
  - Nervous system disorder [Not Recovered/Not Resolved]
  - Cerebral atrophy [Not Recovered/Not Resolved]
  - Vessel puncture site bruise [Not Recovered/Not Resolved]
  - Infusion site pain [Recovered/Resolved]
  - Fatigue [Not Recovered/Not Resolved]
  - Urinary tract infection [Recovered/Resolved]
